FAERS Safety Report 14030163 (Version 1)
Quarter: 2017Q4

REPORT INFORMATION
  Report Type: Spontaneous
  Country: BE (occurrence: BE)
  Receive Date: 20171001
  Receipt Date: 20171001
  Transmission Date: 20180321
  Serious: Yes (Other)
  Sender: FDA-Public Use
  Company Number: BE-AMGEN-BELSP2017145592

PATIENT
  Age: 86 Year
  Sex: Female

DRUGS (1)
  1. PROLIA [Suspect]
     Active Substance: DENOSUMAB
     Indication: PRODUCT USED FOR UNKNOWN INDICATION
     Dosage: UNK
     Route: 065
     Dates: start: 2014

REACTIONS (1)
  - Spinal fracture [Not Recovered/Not Resolved]
